FAERS Safety Report 15935636 (Version 1)
Quarter: 2019Q1

REPORT INFORMATION
  Report Type: Report from Study
  Country: US (occurrence: US)
  Receive Date: 20190208
  Receipt Date: 20190208
  Transmission Date: 20190417
  Serious: Yes (Hospitalization, Other)
  Sender: FDA-Public Use
  Company Number: US-UCBSA-2018049962

PATIENT
  Age: 51 Year
  Sex: Female

DRUGS (3)
  1. LEVETIRACETAM. [Suspect]
     Active Substance: LEVETIRACETAM
     Indication: SEIZURE
     Dosage: 500 MG 3 PILLS DAILY
     Dates: start: 20170919
  2. LEVETIRACETAM. [Suspect]
     Active Substance: LEVETIRACETAM
     Dosage: 500 MG 5 TABLETS A DAY
  3. LEVETIRACETAM. [Suspect]
     Active Substance: LEVETIRACETAM
     Dosage: 500 MG 1 TABLET IN MORNING 1 TABLET AT LUNCH 1 TABLET AT DINNER AND 2 TABLET AT BEDTIM, 4X/DAY (QID)
     Dates: start: 20181108, end: 20181206

REACTIONS (5)
  - Off label use [Unknown]
  - Breast cyst [Recovered/Resolved]
  - Breast abscess [Recovered/Resolved]
  - Seizure [Not Recovered/Not Resolved]
  - Product dose omission [Unknown]

NARRATIVE: CASE EVENT DATE: 20180926
